FAERS Safety Report 9903170 (Version 1)
Quarter: 2014Q1

REPORT INFORMATION
  Report Type: Spontaneous
  Country: US (occurrence: US)
  Receive Date: 20140217
  Receipt Date: 20140217
  Transmission Date: 20141002
  Serious: Yes (Death, Other)
  Sender: FDA-Public Use
  Company Number: PHHY2014US016054

PATIENT
  Sex: 0

DRUGS (3)
  1. CISPLATIN [Suspect]
     Indication: SQUAMOUS CELL CARCINOMA OF THE VULVA
     Dosage: 50-100 MG/M2, UNK
     Route: 042
  2. 5-FLUOROURACIL [Suspect]
     Indication: SQUAMOUS CELL CARCINOMA OF THE VULVA
     Dosage: 1000 MG/M2, UNK
     Route: 042
  3. RADIATION THERAPY [Suspect]
     Indication: SQUAMOUS CELL CARCINOMA OF THE VULVA
     Dosage: 50.5 GY, UNK

REACTIONS (3)
  - Death [Fatal]
  - Metastases to lymph nodes [Unknown]
  - Skin exfoliation [Unknown]
